FAERS Safety Report 9373797 (Version 4)
Quarter: 2014Q2

REPORT INFORMATION
  Report Type: Report from Study
  Country: GB (occurrence: GB)
  Receive Date: 20130628
  Receipt Date: 20140528
  Transmission Date: 20141212
  Serious: Yes (Other)
  Sender: FDA-Public Use
  Company Number: GB-ROCHE-1241742

PATIENT
  Age: 82 Year
  Sex: Female

DRUGS (4)
  1. RANIBIZUMAB [Suspect]
     Indication: PRODUCT USED FOR UNKNOWN INDICATION
     Route: 050
     Dates: start: 20080904
  2. RANIBIZUMAB [Suspect]
     Route: 050
     Dates: start: 20130925
  3. ATENOLOL [Concomitant]
     Route: 065
     Dates: start: 20080804
  4. ASPIRIN [Concomitant]

REACTIONS (2)
  - Chest discomfort [Unknown]
  - Angina pectoris [Unknown]
